FAERS Safety Report 7071809-3 (Version None)
Quarter: 2010Q4

REPORT INFORMATION
  Report Type: 
  Country: None (occurrence: None)
  Receive Date: 20101029
  Receipt Date: 20101027
  Transmission Date: 20110411
  Serious: Yes (Other)
  Sender: FDA-Public Use
  Company Number: US-WYE-H17570110

PATIENT
  Sex: Female
  Weight: 54.48 kg

DRUGS (9)
  1. RELISTOR [Suspect]
     Indication: CONSTIPATION
     Route: 058
     Dates: start: 20100903
  2. CYMBALTA [Concomitant]
     Route: 065
  3. LYRICA [Suspect]
     Indication: PETIT MAL EPILEPSY
     Route: 065
  4. TOPAMAX [Concomitant]
     Indication: PETIT MAL EPILEPSY
     Route: 065
  5. DURAGESIC-100 [Concomitant]
     Route: 061
  6. DAYPRO [Concomitant]
     Route: 065
  7. NORCO [Concomitant]
     Dosage: 20/650 MG, 4X/DAY AS NEEDED
     Route: 065
  8. LUNESTA [Concomitant]
     Route: 065
  9. CHANTIX [Suspect]
     Indication: EX-TOBACCO USER
     Dosage: UNSPECIFIED
     Route: 065
     Dates: start: 20100806

REACTIONS (3)
  - FALL [None]
  - GRAND MAL CONVULSION [None]
  - NEEDLE ISSUE [None]
